FAERS Safety Report 5583800-4 (Version None)
Quarter: 2008Q1

REPORT INFORMATION
  Report Type: 
  Country: None (occurrence: None)
  Receive Date: 20080108
  Receipt Date: 20071228
  Transmission Date: 20080703
  Serious: Yes (Other)
  Sender: FDA-Public Use
  Company Number: US-JNJFOC-20080100016

PATIENT
  Sex: Male
  Weight: 70.31 kg

DRUGS (10)
  1. DURAGESIC-100 [Suspect]
     Indication: PAIN
     Route: 062
  2. ARICEPT [Concomitant]
     Indication: DEMENTIA ALZHEIMER'S TYPE
     Route: 048
  3. ACTONEL [Concomitant]
     Indication: OSTEOPOROSIS
     Route: 048
  4. REMERON [Concomitant]
     Indication: DEPRESSION
     Route: 048
  5. RESTASIS [Concomitant]
     Indication: DRY EYE
     Route: 031
  6. ULTRAM [Concomitant]
     Indication: BREAKTHROUGH PAIN
     Dosage: UNKNOWN DOSE TAKEN 4 TIMES A DAY AS NEEDED
     Route: 048
  7. MIRAPEX [Concomitant]
     Indication: PARKINSON'S DISEASE
     Route: 048
  8. PARCOPA [Concomitant]
     Indication: PARKINSON'S DISEASE
     Route: 048
  9. NEXIUM [Concomitant]
     Indication: GASTRIC ULCER
     Route: 048
  10. KLONOPIN [Concomitant]
     Indication: PARKINSON'S DISEASE

REACTIONS (4)
  - BLOOD CHOLESTEROL INCREASED [None]
  - BURSITIS [None]
  - CONSTIPATION [None]
  - PROSTATOMEGALY [None]
